FAERS Safety Report 8081450-1 (Version None)
Quarter: 2012Q1

REPORT INFORMATION
  Report Type: 
  Country: None (occurrence: None)
  Receive Date: 20120130
  Receipt Date: 20120124
  Transmission Date: 20120608
  Serious: Yes (Hospitalization)
  Sender: FDA-Public Use
  Company Number: AT-PFIZER INC-2012020102

PATIENT
  Age: 67 Year
  Sex: Female
  Weight: 70 kg

DRUGS (4)
  1. FUCIDINE CAP [Interacting]
     Indication: LOCALISED INFECTION
  2. CLINDAMYCIN HCL [Concomitant]
  3. ATORVASTATIN CALCIUM [Suspect]
     Dosage: 40 MG, 1X/DAY
     Route: 048
     Dates: start: 20110101
  4. CIPROFLOXACIN [Concomitant]

REACTIONS (3)
  - DRUG INTERACTION [None]
  - SPEECH DISORDER [None]
  - RHABDOMYOLYSIS [None]
